FAERS Safety Report 12296908 (Version 1)
Quarter: 2016Q2

REPORT INFORMATION
  Report Type: Spontaneous
  Country: FR (occurrence: FR)
  Receive Date: 20160422
  Receipt Date: 20160422
  Transmission Date: 20160815
  Serious: Yes (Other)
  Sender: FDA-Public Use
  Company Number: FR-BAYER-2016-073529

PATIENT
  Sex: Female

DRUGS (1)
  1. ASPIRINE PROTECT [Suspect]
     Active Substance: ASPIRIN
     Dosage: UNK

REACTIONS (2)
  - Cholestasis [None]
  - Gamma-glutamyltransferase increased [None]
